FAERS Safety Report 7386347-8 (Version None)
Quarter: 2011Q1

REPORT INFORMATION
  Report Type: 
  Country: None (occurrence: None)
  Receive Date: 20110331
  Receipt Date: 20110318
  Transmission Date: 20110831
  Serious: Yes (Other)
  Sender: FDA-Public Use
  Company Number: PHHY2011US22824

PATIENT
  Sex: Female

DRUGS (1)
  1. EXJADE [Suspect]
     Indication: IRON METABOLISM DISORDER
     Dosage: 2500 MG, DAILY
     Route: 048

REACTIONS (3)
  - ORAL PRURITUS [None]
  - PRURITUS GENERALISED [None]
  - BLOOD PRESSURE INCREASED [None]
